FAERS Safety Report 6266570-6 (Version None)
Quarter: 2009Q3

REPORT INFORMATION
  Report Type: 
  Country: None (occurrence: None)
  Receive Date: 20090709
  Receipt Date: 20090626
  Transmission Date: 20100115
  Serious: Yes (Other)
  Sender: FDA-Public Use
  Company Number: 237170K09USA

PATIENT
  Age: 57 Year
  Sex: Female
  Weight: 61 kg

DRUGS (6)
  1. REBIF [Suspect]
     Indication: MULTIPLE SCLEROSIS
     Dosage: 44 MCG, 3 IN 1 WEEKS, SUBCUTANEOUS
     Route: 058
     Dates: start: 20070101, end: 20090601
  2. UNSPECIFIED BLOOD PRESSURE [Concomitant]
  3. UNSPECIFIED CHOLESTEROL MEDICATION(ALL OTHER THERAPEUTIC PRODUCTS) [Concomitant]
  4. ABILIFY [Concomitant]
  5. PROZAC [Concomitant]
  6. TEGRETOL [Concomitant]

REACTIONS (1)
  - GRAND MAL CONVULSION [None]
